FAERS Safety Report 4307422-8 (Version None)
Quarter: 2004Q1

REPORT INFORMATION
  Report Type: 
  Country: None (occurrence: None)
  Receive Date: 20040226
  Receipt Date: 20040216
  Transmission Date: 20041129
  Serious: Yes (Hospitalization, Other)
  Sender: FDA-Public Use
  Company Number: 2004009985

PATIENT
  Age: 58 Year
  Sex: Male

DRUGS (3)
  1. NORVASC [Suspect]
     Indication: HYPERTENSION
     Dosage: 10 MG (DAILY), ORAL
     Route: 048
     Dates: end: 20031028
  2. ACETYLSALICYLIC ACID SRT [Suspect]
     Indication: PROPHYLAXIS
     Dosage: 100 MG (DAILY), ORAL
     Route: 048
     Dates: end: 20031028
  3. VALSARTAN (VALSARTAN) [Concomitant]

REACTIONS (6)
  - BLOOD GLUCOSE INCREASED [None]
  - BLOOD PRESSURE INCREASED [None]
  - BRAIN OEDEMA [None]
  - DRUG INTERACTION [None]
  - SOMNOLENCE [None]
  - SUBARACHNOID HAEMORRHAGE [None]
